FAERS Safety Report 20114299 (Version 1)
Quarter: 2021Q4

REPORT INFORMATION
  Report Type: Spontaneous
  Country: US (occurrence: US)
  Receive Date: 20211125
  Receipt Date: 20211125
  Transmission Date: 20220303
  Serious: Yes (Death, Hospitalization, Other)
  Sender: FDA-Public Use
  Company Number: US-BRISTOL-MYERS SQUIBB COMPANY-BMS-2021-125148

PATIENT
  Age: 78 Year
  Sex: Male
  Weight: 103 kg

DRUGS (19)
  1. ELIQUIS [Suspect]
     Active Substance: APIXABAN
     Indication: Product used for unknown indication
     Dosage: UNK
     Route: 048
     Dates: end: 20160818
  2. COUMADIN [Suspect]
     Active Substance: WARFARIN SODIUM
     Indication: Thrombosis prophylaxis
     Dosage: 5 MILLIGRAM, QD
     Route: 048
     Dates: start: 20160121, end: 20160815
  3. IMBRUVICA [Suspect]
     Active Substance: IBRUTINIB
     Indication: Chronic lymphocytic leukaemia
     Dosage: 420 MILLIGRAM, QD
     Route: 048
     Dates: start: 20160406, end: 20161203
  4. CRESTOR [Concomitant]
     Active Substance: ROSUVASTATIN CALCIUM
     Indication: Hypolipidaemia
     Dosage: 10 MILLIGRAM, QD
     Route: 048
     Dates: end: 20170114
  5. LANTUS [Concomitant]
     Active Substance: INSULIN GLARGINE
     Indication: Diabetes mellitus
     Dosage: UNK
     Route: 058
     Dates: end: 20170114
  6. NOVOLOG [Concomitant]
     Active Substance: INSULIN ASPART
     Indication: Diabetes mellitus
     Dosage: ADJUSTED DOSE
     Route: 058
     Dates: start: 20100510, end: 20170114
  7. PRILOSEC [Concomitant]
     Active Substance: OMEPRAZOLE MAGNESIUM
     Indication: Product used for unknown indication
     Dosage: 20 MILLIGRAM, QD
     Route: 048
     Dates: start: 20100510, end: 20170114
  8. METFORMIN HYDROCHLORIDE [Concomitant]
     Active Substance: METFORMIN HYDROCHLORIDE
     Indication: Diabetes mellitus
     Dosage: 500 MILLIGRAM, QD
     Route: 048
  9. METOPROLOL [Concomitant]
     Active Substance: METOPROLOL
     Indication: Hypertension
     Dosage: 50 MILLIGRAM, BID
     Route: 048
  10. LOTREL [Concomitant]
     Active Substance: AMLODIPINE BESYLATE\BENAZEPRIL HYDROCHLORIDE
     Indication: Hypertension
     Dosage: 1 DOSAGE FORM, QD
     Route: 048
     Dates: start: 201005, end: 20170114
  11. SODIUM CHLORIDE [Concomitant]
     Active Substance: SODIUM CHLORIDE
     Indication: Dehydration
     Dosage: 1 LITER AS REQUIRED
     Route: 042
     Dates: start: 20160816, end: 20160819
  12. SODIUM CHLORIDE [Concomitant]
     Active Substance: SODIUM CHLORIDE
     Dosage: 1 LITER AS REQUIRED
     Route: 042
     Dates: start: 20160820, end: 20160821
  13. ACETAMINOPHEN [Concomitant]
     Active Substance: ACETAMINOPHEN
     Indication: Headache
     Dosage: 1 DOSAGE FORM, QD
     Route: 048
     Dates: start: 20160819, end: 20160819
  14. PYRIDIUM [Concomitant]
     Active Substance: PHENAZOPYRIDINE
     Indication: Bladder pain
     Dosage: 200 MILLIGRAM AS REQUIRED
     Route: 048
     Dates: start: 20010820, end: 20170114
  15. PYRIDIUM [Concomitant]
     Active Substance: PHENAZOPYRIDINE
     Indication: Bladder spasm
  16. FLOMAX [Concomitant]
     Active Substance: TAMSULOSIN HYDROCHLORIDE
     Indication: Product used for unknown indication
     Dosage: 0.4 MILLIGRAM, QD
     Route: 048
     Dates: start: 20160821, end: 20170114
  17. PROTONIX [Concomitant]
     Active Substance: PANTOPRAZOLE SODIUM
     Indication: Product used for unknown indication
     Dosage: 40 MILLIGRAM, QD
     Route: 048
     Dates: start: 20160818, end: 20170114
  18. TYLENOL [Concomitant]
     Active Substance: ACETAMINOPHEN
     Indication: Bladder pain
     Dosage: 1 DOSAGE FORM AS REQUIRED
     Route: 048
     Dates: start: 20160821, end: 20170114
  19. PROBIOTIC [BIFIDOBACTERIUM BIFIDUM;BIFIDOBACTERIUM LACTIS;BIFIDOBACTER [Concomitant]
     Indication: Product used for unknown indication
     Dosage: 1 DOSAGE FORM, QD
     Route: 048
     Dates: start: 20160805, end: 20170114

REACTIONS (17)
  - Bladder transitional cell carcinoma recurrent [Fatal]
  - Haematuria [Unknown]
  - Anaemia [Recovered/Resolved]
  - Metastases to liver [Not Recovered/Not Resolved]
  - Prostate cancer [Unknown]
  - Thrombocytopenia [Unknown]
  - Urinary bladder haemorrhage [Recovering/Resolving]
  - Urinary tract infection [Recovered/Resolved]
  - Hypokalaemia [Recovered/Resolved]
  - Hyperglycaemia [Not Recovered/Not Resolved]
  - Psoriasis [Recovering/Resolving]
  - Constipation [Unknown]
  - Fall [Unknown]
  - Contusion [Unknown]
  - Osteoarthritis [Unknown]
  - Gait disturbance [Unknown]
  - Skin ulcer [Recovering/Resolving]

NARRATIVE: CASE EVENT DATE: 20160101
